FAERS Safety Report 16730353 (Version 2)
Quarter: 2020Q2

REPORT INFORMATION
  Report Type: Spontaneous
  Country: US (occurrence: US)
  Receive Date: 20190822
  Receipt Date: 20200408
  Transmission Date: 20200713
  Serious: No
  Sender: FDA-Public Use
  Company Number: US-AMGEN INC.-USASP2019133612

PATIENT

DRUGS (1)
  1. AIMOVIG [Suspect]
     Active Substance: ERENUMAB-AOOE
     Indication: PRODUCT USED FOR UNKNOWN INDICATION
     Dosage: UNK
     Route: 065

REACTIONS (7)
  - Hot flush [Unknown]
  - Weight increased [Unknown]
  - Joint range of motion decreased [Unknown]
  - Pruritus [Unknown]
  - Skin haemorrhage [Unknown]
  - Constipation [Unknown]
  - Arthralgia [Unknown]
